FAERS Safety Report 11152072 (Version 1)
Quarter: 2015Q2

REPORT INFORMATION
  Report Type: Spontaneous
  Country: US (occurrence: None)
  Receive Date: 20150529
  Receipt Date: 20150529
  Transmission Date: 20150821
  Serious: Yes (Hospitalization)
  Sender: FDA-Public Use
  Company Number: None

PATIENT
  Age: 66 Year
  Sex: Male
  Weight: 68.25 kg

DRUGS (15)
  1. MIRTAZAPINE. [Concomitant]
     Active Substance: MIRTAZAPINE
  2. ONDANSETRON HCI [Concomitant]
  3. BENADRYL [Concomitant]
     Active Substance: DIPHENHYDRAMINE HYDROCHLORIDE
  4. DEXAMETHASONE. [Concomitant]
     Active Substance: DEXAMETHASONE
  5. AMOXICILLIN-POT CLAVULANATE [Concomitant]
  6. CARBOPLATIN. [Suspect]
     Active Substance: CARBOPLATIN
     Dosage: CARBOPLATIN AUC5IV;
     Route: 042
     Dates: start: 20150421, end: 20150512
  7. ASPIRIN. [Concomitant]
     Active Substance: ASPIRIN
  8. CETUXIMAB 250 MG/M2 IV [Suspect]
     Active Substance: CETUXIMAB
     Route: 042
     Dates: start: 20120421, end: 20150512
  9. CARBOPLATIN. [Suspect]
     Active Substance: CARBOPLATIN
     Indication: LARYNGEAL SQUAMOUS CELL CARCINOMA
     Dosage: CARBOPLATIN AUC5IV;
     Route: 042
     Dates: start: 20150421, end: 20150512
  10. VENLAFAXINE HCI [Concomitant]
  11. LEVOTHYROXINE SODIUM. [Concomitant]
     Active Substance: LEVOTHYROXINE SODIUM
  12. MELATONIN [Concomitant]
     Active Substance: MELATONIN
  13. PROCHLORPERAZINE MALEATE. [Concomitant]
     Active Substance: PROCHLORPERAZINE MALEATE
  14. NAB-PACLITAXEL [Suspect]
     Active Substance: PACLITAXEL
     Indication: LARYNGEAL SQUAMOUS CELL CARCINOMA
     Route: 042
     Dates: start: 20150421, end: 20150512
  15. BUSPIRONE HCI [Concomitant]

REACTIONS (10)
  - Headache [None]
  - Nausea [None]
  - Pyrexia [None]
  - Vomiting [None]
  - Tracheal fistula [None]
  - Diarrhoea [None]
  - Weight decreased [None]
  - Failure to thrive [None]
  - Tracheitis [None]
  - Unevaluable event [None]

NARRATIVE: CASE EVENT DATE: 20150518
